APPROVED DRUG PRODUCT: CLOMIPRAMINE HYDROCHLORIDE
Active Ingredient: CLOMIPRAMINE HYDROCHLORIDE
Strength: 75MG
Dosage Form/Route: CAPSULE;ORAL
Application: A210653 | Product #003 | TE Code: AB
Applicant: TP ANDA HOLDINGS LLC
Approved: Apr 3, 2020 | RLD: No | RS: No | Type: RX